FAERS Safety Report 16059099 (Version 1)
Quarter: 2019Q1

REPORT INFORMATION
  Report Type: Spontaneous
  Country: SE (occurrence: SE)
  Receive Date: 20190311
  Receipt Date: 20190311
  Transmission Date: 20190418
  Serious: Yes (Life-Threatening, Hospitalization, Disabling)
  Sender: FDA-Public Use
  Company Number: SE-ASTRAZENECA-2019SE38994

PATIENT
  Age: 74 Year
  Sex: Female
  Weight: 45 kg

DRUGS (26)
  1. DIMETICONE [Interacting]
     Active Substance: DIMETHICONE
     Indication: FLATULENCE
     Route: 065
  2. NIFEREX (IRON\POLYSACCHARIDES) [Interacting]
     Active Substance: IRON\POLYSACCHARIDES
     Indication: MINERAL SUPPLEMENTATION
     Route: 065
  3. TRAMADOL. [Interacting]
     Active Substance: TRAMADOL
     Indication: PAIN
     Route: 065
  4. NATRIUMKLORID [Interacting]
     Active Substance: SODIUM CHLORIDE
     Indication: PRODUCT USED FOR UNKNOWN INDICATION
     Route: 065
  5. ESOMEPRAZOLE. [Suspect]
     Active Substance: ESOMEPRAZOLE MAGNESIUM
     Indication: PRODUCT USED FOR UNKNOWN INDICATION
     Route: 048
  6. TROMBYL [Interacting]
     Active Substance: ASPIRIN
     Indication: ANTICOAGULANT THERAPY
     Route: 065
  7. HEMINEVRIN [Interacting]
     Active Substance: CLOMETHIAZOLE
     Indication: ANXIETY
     Dosage: 300 MG, ^50 MG^;
     Route: 065
  8. HEMINEVRIN [Interacting]
     Active Substance: CLOMETHIAZOLE
     Indication: SLEEP DISORDER
     Dosage: CLOMETHIAZOLE EDISILATE (300 MG, ^50 MG^;)
     Route: 065
  9. DIAZEPAM. [Interacting]
     Active Substance: DIAZEPAM
     Indication: ANXIETY
     Route: 065
  10. NIFEREX (IRON\POLYSACCHARIDES) [Interacting]
     Active Substance: IRON\POLYSACCHARIDES
     Indication: MINERAL SUPPLEMENTATION
     Dosage: POLYSACCHARIDE-IRON COMPLEX
     Route: 065
  11. ACETYLCYSTEINE. [Interacting]
     Active Substance: ACETYLCYSTEINE
     Indication: INCREASED VISCOSITY OF UPPER RESPIRATORY SECRETION
     Route: 065
  12. PRAMIPEXOLE. [Interacting]
     Active Substance: PRAMIPEXOLE
     Indication: MUSCLE SPASMS
     Route: 065
  13. HIRUDOID [Interacting]
     Active Substance: GLYCOSAMINOGLYCANS
     Indication: VARICOSE VEIN
     Route: 065
  14. HALDOL [Interacting]
     Active Substance: HALOPERIDOL
     Indication: PRODUCT USED FOR UNKNOWN INDICATION
     Route: 065
  15. HEMINEVRIN [Interacting]
     Active Substance: CLOMETHIAZOLE
     Indication: SLEEP DISORDER
     Dosage: 300 MG, ^50 MG^;
     Route: 065
  16. ALVEDON [Interacting]
     Active Substance: ACETAMINOPHEN
     Indication: PAIN
     Route: 065
  17. ISOSORBIDE MONONITRATE. [Interacting]
     Active Substance: ISOSORBIDE MONONITRATE
     Indication: VASODILATATION
     Route: 048
  18. TROMBYL [Interacting]
     Active Substance: ASPIRIN
     Indication: PAIN
     Route: 065
  19. ATORVASTATIN [Interacting]
     Active Substance: ATORVASTATIN
     Indication: BLOOD CHOLESTEROL INCREASED
     Route: 065
  20. HEMINEVRIN [Interacting]
     Active Substance: CLOMETHIAZOLE
     Indication: ANXIETY
     Dosage: CLOMETHIAZOLE EDISILATE (300 MG, ^50 MG^;)
     Route: 065
  21. OXASCAND [Interacting]
     Active Substance: OXAZEPAM
     Indication: PRODUCT USED FOR UNKNOWN INDICATION
     Route: 065
  22. GLYCERYL TRINITRATE [Interacting]
     Active Substance: NITROGLYCERIN
     Indication: VASODILATATION
     Route: 065
  23. METOPROLOL. [Interacting]
     Active Substance: METOPROLOL
     Indication: HYPERTENSION
     Route: 065
  24. HEMINEVRIN [Interacting]
     Active Substance: CLOMETHIAZOLE
     Indication: CONFUSIONAL STATE
     Dosage: 300 MG, ^50 MG^;
     Route: 065
  25. HEMINEVRIN [Interacting]
     Active Substance: CLOMETHIAZOLE
     Indication: CONFUSIONAL STATE
     Dosage: CLOMETHIAZOLE EDISILATE (300 MG, ^50 MG^;)
     Route: 065
  26. LEVAXIN [Interacting]
     Active Substance: LEVOTHYROXINE SODIUM
     Indication: HYPOTHYROIDISM
     Route: 065

REACTIONS (6)
  - Chronic fatigue syndrome [Unknown]
  - Toxicity to various agents [Unknown]
  - Fatigue [Unknown]
  - Muscle atrophy [Unknown]
  - Drug interaction [Unknown]
  - Sedation [Unknown]

NARRATIVE: CASE EVENT DATE: 2013
